FAERS Safety Report 23915071 (Version 1)
Quarter: 2024Q2

REPORT INFORMATION
  Report Type: Spontaneous
  Country: IT (occurrence: IT)
  Receive Date: 20240529
  Receipt Date: 20240529
  Transmission Date: 20240716
  Serious: Yes (Other)
  Sender: FDA-Public Use
  Company Number: None

PATIENT
  Age: 56 Year
  Sex: Male
  Weight: 90 kg

DRUGS (7)
  1. LENVATINIB [Suspect]
     Active Substance: LENVATINIB
     Indication: Renal cancer stage IV
     Route: 048
     Dates: start: 20240313, end: 20240329
  2. KEYTRUDA [Suspect]
     Active Substance: PEMBROLIZUMAB
     Indication: Renal cancer stage IV
     Route: 042
     Dates: start: 20240313, end: 20240329
  3. OXYCODONE [Concomitant]
     Active Substance: OXYCODONE\OXYCODONE HYDROCHLORIDE
     Indication: Pain
     Dosage: (1 CP 20/10 + 1 CP 10/5 + 1 CP 5) MORNING?(1 CP 10/5 + 5/2.5) EVENING
     Route: 048
     Dates: start: 202402
  4. FENTANIL [FENTANYL CITRATE] [Concomitant]
     Indication: Product used for unknown indication
     Dosage: 100MCG AS NEEDED
     Route: 048
  5. DOXAZOSINA EG [Concomitant]
     Indication: Hypertension
     Route: 048
     Dates: start: 202403
  6. RAMIPRIL [Concomitant]
     Active Substance: RAMIPRIL
     Indication: Hypertension
     Route: 048
     Dates: start: 202404
  7. PREGABALIN [Concomitant]
     Active Substance: PREGABALIN
     Indication: Pain
     Dosage: 50 + 75 MG ORALLY
     Route: 048
     Dates: start: 202402

REACTIONS (3)
  - Immune-mediated hyperthyroidism [Recovering/Resolving]
  - Neutropenia [Recovering/Resolving]
  - Hypertension [Recovering/Resolving]

NARRATIVE: CASE EVENT DATE: 20240422
